FAERS Safety Report 5161871-7 (Version None)
Quarter: 2006Q4

REPORT INFORMATION
  Report Type: 
  Country: None (occurrence: None)
  Receive Date: 20061130
  Receipt Date: 20061012
  Transmission Date: 20070319
  Serious: No
  Sender: FDA-Public Use
  Company Number: US-GLAXOSMITHKLINE-A0623381A

PATIENT
  Age: 31 Year
  Sex: Female

DRUGS (3)
  1. WELLBUTRIN XL [Suspect]
     Indication: PREMENSTRUAL SYNDROME
     Dosage: 150MG PER DAY
     Route: 048
     Dates: start: 20061005
  2. PROZAC [Concomitant]
  3. CLARITIN PRN [Concomitant]

REACTIONS (1)
  - ALCOHOL USE [None]
